FAERS Safety Report 6491415-9 (Version None)
Quarter: 2009Q4

REPORT INFORMATION
  Report Type: 
  Country: None (occurrence: None)
  Receive Date: 20091211
  Receipt Date: 20091207
  Transmission Date: 20100525
  Serious: Yes (Death)
  Sender: FDA-Public Use
  Company Number: DE-SANOFI-AVENTIS-2009SA007538

PATIENT
  Age: 68 Year

DRUGS (14)
  1. OXALIPLATIN [Suspect]
     Indication: COLON CANCER
     Route: 041
     Dates: start: 20061010, end: 20061010
  2. OXALIPLATIN [Suspect]
     Route: 041
     Dates: start: 20070328, end: 20070328
  3. FLUOROURACIL [Suspect]
     Indication: COLON CANCER
     Route: 041
     Dates: start: 20061010, end: 20061010
  4. FLUOROURACIL [Suspect]
     Route: 041
     Dates: start: 20070329, end: 20070329
  5. FOLINIC ACID [Suspect]
     Indication: COLON CANCER
     Route: 041
     Dates: start: 20061010, end: 20061010
  6. FOLINIC ACID [Suspect]
     Route: 041
     Dates: start: 20090329, end: 20090329
  7. CETUXIMAB [Suspect]
     Indication: COLON CANCER
     Route: 041
     Dates: start: 20061009, end: 20061009
  8. CETUXIMAB [Suspect]
     Route: 041
     Dates: start: 20070404, end: 20070404
  9. OMEPRAZOLE MAGNESIUM [Concomitant]
     Route: 048
     Dates: start: 20060925, end: 20070415
  10. MINOCYCLINE HYDROCHLORIDE [Concomitant]
     Route: 048
     Dates: start: 20061108, end: 20070415
  11. POLYSPECTRAN G [Concomitant]
     Route: 048
     Dates: start: 20061108, end: 20070415
  12. ACETYLSALICYLIC ACID [Concomitant]
     Dosage: DOSE:100 UNIT(S)
     Dates: end: 20070415
  13. METOPROLOL [Concomitant]
     Dosage: DOSE:100 UNIT(S)
     Dates: end: 20070415
  14. ALIZAPRIDE HYDROCHLORIDE [Concomitant]
     Dates: start: 20060925, end: 20070415

REACTIONS (2)
  - CARDIAC ARREST [None]
  - SKIN TOXICITY [None]
